FAERS Safety Report 24246737 (Version 4)
Quarter: 2024Q3

REPORT INFORMATION
  Report Type: Report from Study
  Country: FR (occurrence: FR)
  Receive Date: 20240826
  Receipt Date: 20240915
  Transmission Date: 20241017
  Serious: Yes (Hospitalization, Other)
  Sender: ABBVIE
  Company Number: FR-ABBVIE-5889362

PATIENT
  Age: 29 Year
  Sex: Female
  Weight: 54 kg

DRUGS (6)
  1. SKYRIZI [Suspect]
     Active Substance: RISANKIZUMAB-RZAA
     Indication: Crohn^s disease
     Route: 058
     Dates: start: 2021, end: 2022
  2. SKYRIZI [Suspect]
     Active Substance: RISANKIZUMAB-RZAA
     Route: 058
     Dates: start: 202305
  3. SKYRIZI [Suspect]
     Active Substance: RISANKIZUMAB-RZAA
     Route: 058
     Dates: start: 202304, end: 202304
  4. PREDNISOLONE [Concomitant]
     Active Substance: PREDNISOLONE
     Indication: Crohn^s disease
  5. VEDOLIZUMAB [Concomitant]
     Active Substance: VEDOLIZUMAB
     Indication: Crohn^s disease
     Dates: start: 2021
  6. AZATHIOPRINE [Concomitant]
     Active Substance: AZATHIOPRINE
     Indication: Product used for unknown indication
     Dates: start: 2014

REACTIONS (15)
  - Large intestinal stenosis [Unknown]
  - Maternal exposure during pregnancy [Unknown]
  - Illness [Unknown]
  - Vomiting [Unknown]
  - Colitis [Unknown]
  - Enterocolitis [Unknown]
  - Intestinal obstruction [Unknown]
  - C-reactive protein increased [Unknown]
  - Stenosis [Unknown]
  - Inflammation [Not Recovered/Not Resolved]
  - Abdominal pain [Unknown]
  - Diarrhoea [Unknown]
  - Inflammation [Unknown]
  - Abdominal abscess [Unknown]
  - Anastomotic ulcer [Not Recovered/Not Resolved]

NARRATIVE: CASE EVENT DATE: 20210101
